FAERS Safety Report 18818216 (Version 7)
Quarter: 2021Q3

REPORT INFORMATION
  Report Type: Spontaneous
  Country: JP (occurrence: JP)
  Receive Date: 20210201
  Receipt Date: 20210805
  Transmission Date: 20211014
  Serious: Yes (Hospitalization, Other)
  Sender: FDA-Public Use
  Company Number: NVSJ2021JP001200

PATIENT
  Age: 76 Year
  Sex: Male
  Weight: 49.4 kg

DRUGS (2)
  1. BEOVU [Suspect]
     Active Substance: BROLUCIZUMAB-DBLL
     Dosage: 6 MG
     Route: 031
     Dates: start: 20201210, end: 20201210
  2. BEOVU [Suspect]
     Active Substance: BROLUCIZUMAB-DBLL
     Indication: AGE-RELATED MACULAR DEGENERATION
     Dosage: 6 MG
     Route: 031
     Dates: start: 20200727, end: 20200727

REACTIONS (14)
  - Vitreous opacities [Recovered/Resolved]
  - Vitreous floaters [Recovering/Resolving]
  - Anterior chamber cell [Recovered/Resolved]
  - Anterior chamber inflammation [Recovered/Resolved]
  - Non-infectious endophthalmitis [Recovered/Resolved]
  - Vitreous fibrin [Unknown]
  - Drug ineffective [Unknown]
  - Papilloedema [Recovered/Resolved]
  - Visual acuity reduced transiently [Recovering/Resolving]
  - Optic atrophy [Recovered/Resolved]
  - Cystoid macular oedema [Not Recovered/Not Resolved]
  - Disease recurrence [Not Recovered/Not Resolved]
  - Neovascular age-related macular degeneration [Not Recovered/Not Resolved]
  - Age-related macular degeneration [Unknown]

NARRATIVE: CASE EVENT DATE: 20201202
